FAERS Safety Report 8471435-5 (Version None)
Quarter: 2012Q2

REPORT INFORMATION
  Report Type: 
  Country: None (occurrence: None)
  Receive Date: 20120627
  Receipt Date: 20120620
  Transmission Date: 20120825
  Serious: Yes (Other)
  Sender: FDA-Public Use
  Company Number: PHHY2012EC054585

PATIENT
  Sex: Female

DRUGS (6)
  1. ZOLEDRONOC ACID [Suspect]
     Indication: OSTEOPOROSIS
     Dosage: 5MG/100ML 1 STAT, 1 INFUSION PER YEAR
     Route: 042
     Dates: start: 20090101
  2. ZOLEDRONOC ACID [Suspect]
     Dosage: 5MG/100ML 1 STAT, 1 INFUSION PER YEAR
     Route: 042
     Dates: start: 20100101
  3. ZOLEDRONOC ACID [Suspect]
     Dosage: 5MG/100ML 1 STAT, 1 INFUSION PER YEAR
     Route: 042
     Dates: start: 20110101
  4. CALCIUM [Concomitant]
     Dosage: UNK UKN, UNK
  5. OMEPRAZOLE [Concomitant]
     Dosage: UNK UKN, UNK
  6. ZOLEDRONOC ACID [Suspect]
     Dosage: 5MG/100ML 1 STAT, 1 INFUSION PER YEAR
     Route: 042
     Dates: start: 20120301

REACTIONS (3)
  - HAND FRACTURE [None]
  - FALL [None]
  - FRACTURED COCCYX [None]
